FAERS Safety Report 11605145 (Version 1)
Quarter: 2015Q3

REPORT INFORMATION
  Report Type: Spontaneous
  Country: US (occurrence: US)
  Receive Date: 20150916
  Receipt Date: 20150916
  Transmission Date: 20151125
  Serious: No
  Sender: FDA-Public Use
  Company Number: US-ELI_LILLY_AND_COMPANY-US201404002449

PATIENT
  Sex: Male

DRUGS (1)
  1. HUMALOG [Suspect]
     Active Substance: INSULIN LISPRO
     Indication: TYPE 2 DIABETES MELLITUS
     Dosage: 6 U, AT MEALTIMES
     Route: 065
     Dates: start: 2007

REACTIONS (4)
  - Cataract [Unknown]
  - Drug ineffective [Unknown]
  - Blood glucose increased [Unknown]
  - Insulin resistance [Unknown]
